FAERS Safety Report 5084939-2 (Version None)
Quarter: 2006Q3

REPORT INFORMATION
  Report Type: 
  Country: None (occurrence: None)
  Receive Date: 20060815
  Receipt Date: 20060731
  Transmission Date: 20061208
  Serious: Yes (Hospitalization)
  Sender: FDA-Public Use
  Company Number: 2006PV018652

PATIENT
  Age: 47 Year
  Sex: Female

DRUGS (7)
  1. BYETTA [Suspect]
     Dosage: SC
     Route: 058
     Dates: start: 20060109, end: 20060303
  2. LASIX [Concomitant]
  3. VALIUM [Concomitant]
  4. SOMA [Concomitant]
  5. MORPHINE SULFATE [Concomitant]
  6. ALBUTEROL SPIROS [Concomitant]
  7. ADVAIR DISKUS 100/50 [Concomitant]

REACTIONS (7)
  - DRUG HYPERSENSITIVITY [None]
  - DYSPNOEA [None]
  - PAIN [None]
  - PARAESTHESIA [None]
  - STRIDOR [None]
  - URTICARIA [None]
  - WHEEZING [None]
